FAERS Safety Report 5478321-3 (Version None)
Quarter: 2007Q4

REPORT INFORMATION
  Report Type: 
  Country: None (occurrence: None)
  Receive Date: 20071005
  Receipt Date: 20070926
  Transmission Date: 20080405
  Serious: Yes (Hospitalization)
  Sender: FDA-Public Use
  Company Number: DE-JNJFOC-20071000651

PATIENT
  Age: 40 Year
  Sex: Female

DRUGS (3)
  1. TRAMAL LONG [Suspect]
     Indication: DRUG USE FOR UNKNOWN INDICATION
     Route: 065
  2. NOVORAPID [Concomitant]
     Route: 065
  3. LEVEMIR [Concomitant]
     Route: 065

REACTIONS (1)
  - HYPOGLYCAEMIA [None]
